FAERS Safety Report 16690898 (Version 2)
Quarter: 2019Q3

REPORT INFORMATION
  Report Type: Report from Study
  Country: None (occurrence: US)
  Receive Date: 20190811
  Receipt Date: 20190819
  Transmission Date: 20191004
  Serious: Yes (Hospitalization)
  Sender: FDA-Public Use
  Company Number: US-ABBVIE-19K-163-2849772-00

PATIENT
  Age: 62 Year
  Sex: Female
  Weight: 55.39 kg

DRUGS (1)
  1. HUMIRA [Suspect]
     Active Substance: ADALIMUMAB
     Indication: CROHN^S DISEASE
     Route: 058
     Dates: start: 2014

REACTIONS (14)
  - Skin ulcer [Not Recovered/Not Resolved]
  - Headache [Unknown]
  - Neuropathy peripheral [Not Recovered/Not Resolved]
  - Insomnia [Not Recovered/Not Resolved]
  - Crohn^s disease [Unknown]
  - Skin exfoliation [Not Recovered/Not Resolved]
  - Nausea [Unknown]
  - Small intestinal obstruction [Recovered/Resolved]
  - Renal disorder [Not Recovered/Not Resolved]
  - Cerebral palsy [Unknown]
  - Impaired healing [Not Recovered/Not Resolved]
  - Large intestinal obstruction [Recovered/Resolved]
  - Frequent bowel movements [Unknown]
  - Food intolerance [Unknown]

NARRATIVE: CASE EVENT DATE: 2014
